FAERS Safety Report 8875416 (Version 1)
Quarter: 2012Q4

REPORT INFORMATION
  Report Type: 
  Country: GB (occurrence: GB)
  Receive Date: 20121029
  Receipt Date: 20121029
  Transmission Date: 20130627
  Serious: Yes (Hospitalization)
  Sender: FDA-Public Use
  Company Number: GB-PFIZER INC-2012266479

PATIENT
  Age: 38 Year
  Sex: Female
  Weight: 70.9 kg

DRUGS (1)
  1. GENOTROPIN [Suspect]
     Indication: GROWTH HORMONE DEFICIENCY
     Dosage: 0.15 mg, 1x/day, 7injections/week
     Route: 058
     Dates: start: 20090506

REACTIONS (1)
  - Cerebrospinal fluid leakage [Recovered/Resolved]
